FAERS Safety Report 19045991 (Version 3)
Quarter: 2022Q2

REPORT INFORMATION
  Report Type: Spontaneous
  Country: US (occurrence: US)
  Receive Date: 20210322
  Receipt Date: 20220506
  Transmission Date: 20220721
  Serious: Yes (Other)
  Sender: FDA-Public Use
  Company Number: US-TEVA-2021-US-1893889

PATIENT
  Sex: Male

DRUGS (2)
  1. VALSARTAN [Suspect]
     Active Substance: VALSARTAN
     Indication: Hypertension
     Dates: start: 2009
  2. VALSARTAN [Suspect]
     Active Substance: VALSARTAN
     Indication: Hypertension

REACTIONS (4)
  - Haematuria [Unknown]
  - Flank pain [Unknown]
  - Transitional cell cancer of the renal pelvis and ureter [Unknown]
  - Metastases to lymph nodes [Unknown]
